FAERS Safety Report 8392204-0 (Version None)
Quarter: 2012Q2

REPORT INFORMATION
  Report Type: 
  Country: None (occurrence: None)
  Receive Date: 20120529
  Receipt Date: 20120516
  Transmission Date: 20120825
  Serious: Yes (Other)
  Sender: FDA-Public Use
  Company Number: US-ROCHE-1040252

PATIENT
  Sex: Male
  Weight: 56.75 kg

DRUGS (2)
  1. ACCUTANE [Suspect]
     Indication: ACNE
     Dates: start: 19921101, end: 19930401
  2. TETRACYCLINE [Concomitant]

REACTIONS (6)
  - DEPRESSION [None]
  - COLONIC POLYP [None]
  - INJURY [None]
  - CROHN'S DISEASE [None]
  - INFLAMMATORY BOWEL DISEASE [None]
  - ARTHROPATHY [None]
